FAERS Safety Report 17135961 (Version 1)
Quarter: 2019Q4

REPORT INFORMATION
  Report Type: Spontaneous
  Country: US (occurrence: US)
  Receive Date: 20191210
  Receipt Date: 20191210
  Transmission Date: 20200122
  Serious: Yes (Life-Threatening, Hospitalization, Other)
  Sender: FDA-Public Use
  Company Number: US-PFIZER INC-2019528743

PATIENT
  Age: 68 Year
  Sex: Male

DRUGS (2)
  1. SORAFENIB [Interacting]
     Active Substance: SORAFENIB
     Indication: ACUTE MYELOID LEUKAEMIA
     Dosage: UNK
  2. TACROLIMUS. [Suspect]
     Active Substance: TACROLIMUS
     Indication: ACUTE MYELOID LEUKAEMIA
     Dosage: UNK

REACTIONS (3)
  - Pancreatitis acute [Recovering/Resolving]
  - Hypertriglyceridaemia [Recovering/Resolving]
  - Drug interaction [Recovering/Resolving]
